FAERS Safety Report 15120678 (Version 1)
Quarter: 2018Q3

REPORT INFORMATION
  Report Type: Spontaneous
  Country: FR (occurrence: FR)
  Receive Date: 20180709
  Receipt Date: 20180709
  Transmission Date: 20181010
  Serious: Yes (Hospitalization, Other)
  Sender: FDA-Public Use
  Company Number: FR-SA-2018SA177287

PATIENT
  Age: 49 Year
  Sex: Female

DRUGS (3)
  1. NEORAL [Suspect]
     Active Substance: CYCLOSPORINE
     Indication: DERMATITIS ATOPIC
     Route: 048
     Dates: start: 201706, end: 201712
  2. METHOTREXATE. [Suspect]
     Active Substance: METHOTREXATE
     Indication: DERMATITIS ATOPIC
     Route: 048
     Dates: start: 201712, end: 201802
  3. DUPIXENT [Suspect]
     Active Substance: DUPILUMAB
     Indication: DERMATITIS ATOPIC
     Route: 048
     Dates: start: 20180228, end: 20180518

REACTIONS (1)
  - Cutaneous lymphoma [Recovering/Resolving]

NARRATIVE: CASE EVENT DATE: 20180501
